FAERS Safety Report 10742772 (Version 1)
Quarter: 2015Q1

REPORT INFORMATION
  Report Type: Spontaneous
  Country: US (occurrence: US)
  Receive Date: 20150127
  Receipt Date: 20150127
  Transmission Date: 20150721
  Serious: No
  Sender: FDA-Public Use
  Company Number: US-009507513-1412USA013504

PATIENT
  Age: 36 Year
  Sex: Male

DRUGS (2)
  1. PEGINTRON [Suspect]
     Active Substance: PEGINTERFERON ALFA-2B
     Dosage: 0.5 ML, ONCE A WEEK, STRENGHT 150/0.5 (UNITS NOT PROVIDED), REDIPEN
     Dates: start: 201411
  2. PEGINTRON [Suspect]
     Active Substance: PEGINTERFERON ALFA-2B
     Dosage: 0.3 ML, ONCE, STRENGHT 150/0.5 (UNITS NOT PROVIDED), REDIPEN
     Dates: start: 20141228

REACTIONS (3)
  - No adverse event [Unknown]
  - Accidental underdose [Unknown]
  - Product quality issue [Unknown]

NARRATIVE: CASE EVENT DATE: 20141228
